FAERS Safety Report 8989928 (Version 1)
Quarter: 2012Q4

REPORT INFORMATION
  Report Type: Report from Study
  Country: FR (occurrence: FR)
  Receive Date: 20121228
  Receipt Date: 20121228
  Transmission Date: 20130627
  Serious: Yes (Other)
  Sender: FDA-Public Use
  Company Number: FR-GLAXOSMITHKLINE-B0855228A

PATIENT
  Age: 73 Year
  Sex: Female
  Weight: 94 kg

DRUGS (5)
  1. MELPHALAN [Suspect]
     Indication: MULTIPLE MYELOMA
     Dosage: 26MG per day
     Route: 065
     Dates: start: 20081204
  2. THALIDOMIDE [Suspect]
     Indication: MULTIPLE MYELOMA
     Dosage: 200MG per day
     Route: 048
     Dates: start: 20081204
  3. PREDNISONE [Suspect]
     Indication: MULTIPLE MYELOMA
     Dosage: 200MG per day
     Route: 065
     Dates: start: 20081204
  4. KARDEGIC [Concomitant]
     Indication: THROMBOSIS PROPHYLAXIS
     Dosage: 15MG Per day
     Route: 048
  5. PAROXETINE [Concomitant]
     Indication: PRODUCT USED FOR UNKNOWN INDICATION
     Route: 065

REACTIONS (1)
  - Basal cell carcinoma [Recovered/Resolved]
